FAERS Safety Report 9603827 (Version 3)
Quarter: 2013Q4

REPORT INFORMATION
  Report Type: Spontaneous
  Country: US (occurrence: US)
  Receive Date: 20131008
  Receipt Date: 20131015
  Transmission Date: 20140711
  Serious: No
  Sender: FDA-Public Use
  Company Number: US-009507513-1310USA000894

PATIENT
  Age: 19 Year
  Sex: 0
  Weight: 107.48 kg

DRUGS (1)
  1. NEXPLANON [Suspect]
     Dosage: ONE ROD PER THREE YEARS
     Route: 059
     Dates: start: 20130930

REACTIONS (2)
  - Device difficult to use [Recovered/Resolved]
  - No adverse event [Unknown]
